FAERS Safety Report 7159418-9 (Version None)
Quarter: 2010Q4

REPORT INFORMATION
  Report Type: 
  Country: None (occurrence: None)
  Receive Date: 20101214
  Receipt Date: 20100901
  Transmission Date: 20110411
  Serious: No
  Sender: FDA-Public Use
  Company Number: US-ASTRAZENECA-2010SE41318

PATIENT
  Age: 864 Month
  Sex: Male
  Weight: 104.3 kg

DRUGS (4)
  1. CRESTOR [Suspect]
     Indication: BLOOD CHOLESTEROL INCREASED
     Route: 048
     Dates: start: 20080101
  2. CRESTOR [Suspect]
     Route: 048
     Dates: start: 20100801
  3. BLOOD RPESSURE MEDICATION [Concomitant]
     Indication: HYPERTENSION
     Route: 048
  4. SUGAR TABLET [Concomitant]
     Indication: BLOOD GLUCOSE ABNORMAL
     Dosage: 1/2 TABLET DAILY
     Route: 048

REACTIONS (2)
  - BURNING SENSATION [None]
  - PAIN IN EXTREMITY [None]
